FAERS Safety Report 9132046 (Version 2)
Quarter: 2013Q4

REPORT INFORMATION
  Report Type: Spontaneous
  Country: HU (occurrence: HU)
  Receive Date: 20130301
  Receipt Date: 20131001
  Transmission Date: 20140711
  Serious: Yes (Hospitalization, Other)
  Sender: FDA-Public Use
  Company Number: HU-JNJFOC-20130214067

PATIENT
  Age: 67 Year
  Sex: Male

DRUGS (7)
  1. XARELTO [Suspect]
     Indication: THROMBOSIS PROPHYLAXIS
     Route: 048
     Dates: start: 20130131, end: 20130201
  2. NEODOLPASSE [Concomitant]
     Route: 065
  3. CEFAZOLIN [Concomitant]
     Route: 065
  4. EXACYL [Concomitant]
     Route: 065
  5. RINGER-LACTATE [Concomitant]
     Route: 065
  6. INDAPAMIDE W/PERINDOPRIL [Concomitant]
     Route: 065
  7. EXACYL [Concomitant]
     Route: 065

REACTIONS (3)
  - Urinary retention [Recovered/Resolved]
  - Paraplegia [Recovered/Resolved with Sequelae]
  - Spinal haematoma [Recovered/Resolved with Sequelae]
